FAERS Safety Report 13383370 (Version 1)
Quarter: 2017Q1

REPORT INFORMATION
  Report Type: Report from Study
  Country: DE (occurrence: DE)
  Receive Date: 20170329
  Receipt Date: 20170329
  Transmission Date: 20170429
  Serious: Yes (Other)
  Sender: FDA-Public Use
  Company Number: DE-PFIZER INC-2017128667

PATIENT
  Age: 18 Year
  Sex: Male

DRUGS (2)
  1. TRABECTEDIN [Suspect]
     Active Substance: TRABECTEDIN
     Indication: SYNOVIAL SARCOMA
     Dosage: UNK UNK, CYCLIC (ON DAY 1, 21 DAYS COURSE)
     Route: 041
  2. IRINOTECAN HCL [Suspect]
     Active Substance: IRINOTECAN HYDROCHLORIDE
     Indication: SYNOVIAL SARCOMA
     Dosage: UNK UNK,  CYCLIC (ON DAYS 3-5 AND 10-12)
     Route: 048

REACTIONS (2)
  - Pancytopenia [Unknown]
  - Hepatotoxicity [Unknown]
